FAERS Safety Report 13839548 (Version 1)
Quarter: 2017Q3

REPORT INFORMATION
  Report Type: Spontaneous
  Country: US (occurrence: US)
  Receive Date: 20170805
  Receipt Date: 20170805
  Transmission Date: 20171127
  Serious: No
  Sender: FDA-Public Use
  Company Number: None

PATIENT
  Age: 32 Year
  Sex: Female

DRUGS (18)
  1. ENOXAPARIN [Concomitant]
     Active Substance: ENOXAPARIN
  2. PREDNISONE. [Concomitant]
     Active Substance: PREDNISONE
  3. VALGANCICLOVIR. [Suspect]
     Active Substance: VALGANCICLOVIR
     Indication: PROPHYLAXIS
     Route: 048
     Dates: start: 20161215, end: 20170205
  4. ACETAMINOPHEN. [Concomitant]
     Active Substance: ACETAMINOPHEN
  5. VITAMIN E [Concomitant]
     Active Substance: .ALPHA.-TOCOPHEROL
  6. VORICONAZOLE. [Concomitant]
     Active Substance: VORICONAZOLE
  7. LANSOPRAZOLE. [Concomitant]
     Active Substance: LANSOPRAZOLE
  8. MIRTAZAPINE. [Concomitant]
     Active Substance: MIRTAZAPINE
  9. ONDANSETRON [Concomitant]
     Active Substance: ONDANSETRON
  10. INSULIN ASPART [Concomitant]
     Active Substance: INSULIN ASPART
  11. MULTIVITAMIN [Concomitant]
     Active Substance: VITAMINS
  12. PANCREALIPASE [Concomitant]
     Active Substance: PANCRELIPASE
  13. SULFAMETHOXAZOLE/TRIMETHOPRIM [Suspect]
     Active Substance: SULFAMETHOXAZOLE\TRIMETHOPRIM
     Dosage: 1 DS TAB EVERY MON/WED/FRI PO
     Route: 048
  14. CALCIUM + VITAMIN D [Concomitant]
     Active Substance: CALCIUM\VITAMIN D
  15. CETIRIZINE [Concomitant]
     Active Substance: CETIRIZINE HYDROCHLORIDE
  16. METOCLOPRAMIDE. [Concomitant]
     Active Substance: METOCLOPRAMIDE
  17. DOCUSATE [Concomitant]
     Active Substance: DOCUSATE
  18. SENNA [Concomitant]
     Active Substance: SENNA LEAF\SENNOSIDES\SENNOSIDES A AND B

REACTIONS (3)
  - Acute kidney injury [None]
  - White blood cell count decreased [None]
  - Neutrophil count decreased [None]

NARRATIVE: CASE EVENT DATE: 20170205
